FAERS Safety Report 10674449 (Version 1)
Quarter: 2014Q4

REPORT INFORMATION
  Report Type: Spontaneous
  Country: US (occurrence: None)
  Receive Date: 20141210
  Receipt Date: 20141210
  Transmission Date: 20150529
  Serious: Yes (Other)
  Sender: FDA-Public Use
  Company Number: ALL1-2014-00532

PATIENT
  Age: 12 Year
  Sex: Male
  Weight: 59 kg

DRUGS (1)
  1. MAS [Suspect]
     Active Substance: AMPHETAMINE
     Indication: ATTENTION DEFICIT/HYPERACTIVITY DISORDER
     Route: 048
     Dates: start: 201401, end: 201401

REACTIONS (2)
  - Hallucination, auditory [None]
  - Feeling abnormal [None]

NARRATIVE: CASE EVENT DATE: 201401
